FAERS Safety Report 12329450 (Version 1)
Quarter: 2016Q2

REPORT INFORMATION
  Report Type: Spontaneous
  Country: US (occurrence: US)
  Receive Date: 20160503
  Receipt Date: 20160503
  Transmission Date: 20160815
  Serious: No
  Sender: FDA-Public Use
  Company Number: US-JNJFOC-20160320687

PATIENT
  Age: 52 Year
  Sex: Female
  Weight: 90.27 kg

DRUGS (13)
  1. ALINIA [Concomitant]
     Active Substance: NITAZOXANIDE
     Dosage: REPORTED AS ORAL, TABLET 500 MG AND COMPOUND CREAM INTRAVAGINALLY 250 MG/5GR
     Route: 065
     Dates: start: 20160128
  2. CLINDAMYCIN [Concomitant]
     Active Substance: CLINDAMYCIN\CLINDAMYCIN PHOSPHATE
     Dosage: 2% CREAM
     Route: 067
     Dates: start: 20160126
  3. CYCLOBENZAPRINE [Concomitant]
     Active Substance: CYCLOBENZAPRINE
     Dosage: TAKE FOR 30 DAYS
     Route: 048
     Dates: start: 20160202
  4. ALBUTEROL SULFATE. [Concomitant]
     Active Substance: ALBUTEROL SULFATE
     Dosage: INHALE 3 MILLILITERS 2.5 MG BY NEBULIZATION ROUTE 4 TIMES PER DAY AS NEEDED
     Route: 055
     Dates: start: 20151122
  5. SPIRIVA [Concomitant]
     Active Substance: TIOTROPIUM BROMIDE MONOHYDRATE
     Dosage: 5MCG
     Route: 055
     Dates: start: 20151023
  6. PREZCOBIX [Suspect]
     Active Substance: COBICISTAT\DARUNAVIR ETHANOLATE
     Indication: HIV INFECTION
     Route: 048
     Dates: start: 20151203, end: 20151230
  7. QVAR [Concomitant]
     Active Substance: BECLOMETHASONE DIPROPIONATE
     Dosage: 80 MCG; TAKE FOR 30 DAYS
     Route: 055
     Dates: start: 20151008
  8. BACTRIM DS [Concomitant]
     Active Substance: SULFAMETHOXAZOLE\TRIMETHOPRIM
     Dosage: TAKE FOR 30 DAYS, 800/160 TABLET
     Route: 048
     Dates: start: 20151023
  9. CLARITIN [Concomitant]
     Active Substance: LORATADINE
     Dosage: TAKE FOR 30 DAYS
     Route: 048
     Dates: start: 20150817
  10. NICODERM CQ [Concomitant]
     Active Substance: NICOTINE
     Dosage: 1 PATCH PER DAY FOR 8 WEEKS
     Route: 062
     Dates: start: 20151023
  11. TRIUMEQ [Suspect]
     Active Substance: ABACAVIR SULFATE\DOLUTEGRAVIR SODIUM\LAMIVUDINE
     Indication: HIV INFECTION
     Route: 048
     Dates: start: 20151203, end: 20151230
  12. NAPROXEN. [Concomitant]
     Active Substance: NAPROXEN
     Dosage: TAKE FOR 30 DAYS
     Route: 048
     Dates: start: 20151103
  13. TRAZODONE [Concomitant]
     Active Substance: TRAZODONE HYDROCHLORIDE
     Dosage: TAKE FOR 30 DAYS
     Route: 048
     Dates: start: 20150810

REACTIONS (3)
  - Abdominal discomfort [Recovered/Resolved]
  - Arthralgia [Recovered/Resolved]
  - Fatigue [Recovered/Resolved]

NARRATIVE: CASE EVENT DATE: 201512
